FAERS Safety Report 19890685 (Version 1)
Quarter: 2021Q3

REPORT INFORMATION
  Report Type: Report from Study
  Country: CA (occurrence: CA)
  Receive Date: 20210928
  Receipt Date: 20210928
  Transmission Date: 20211014
  Serious: Yes (Other)
  Sender: FDA-Public Use
  Company Number: CA-GLAXOSMITHKLINE-CA2021AMR201071

PATIENT
  Age: 55 Year
  Sex: Female

DRUGS (1)
  1. MEPOLIZUMAB [Suspect]
     Active Substance: MEPOLIZUMAB
     Indication: ASTHMA
     Dosage: 100MG/SC EVERY 4 WEEKS
     Route: 058
     Dates: start: 20210315

REACTIONS (6)
  - Asthma [Unknown]
  - Fatigue [Unknown]
  - Arthralgia [Unknown]
  - Multiple sclerosis [Unknown]
  - Gait disturbance [Unknown]
  - Pain in extremity [Unknown]

NARRATIVE: CASE EVENT DATE: 202108
